FAERS Safety Report 8100130-7 (Version None)
Quarter: 2012Q1

REPORT INFORMATION
  Report Type: 
  Country: None (occurrence: None)
  Receive Date: 20120129
  Receipt Date: 20111209
  Transmission Date: 20120608
  Serious: No
  Sender: FDA-Public Use
  Company Number: US-ABBOTT-11P-163-0879059-00

PATIENT
  Age: 61 Year
  Sex: Female

DRUGS (4)
  1. SYNTHROID [Concomitant]
     Indication: PRODUCT USED FOR UNKNOWN INDICATION
     Dosage: DAILY
  2. HUMIRA [Suspect]
     Indication: CROHN'S DISEASE
     Dates: start: 20111001
  3. HUMIRA [Suspect]
     Dates: start: 20111202
  4. AVISTA [Concomitant]
     Indication: OSTEOPENIA
     Dosage: DAILY

REACTIONS (2)
  - INJECTION SITE PAIN [None]
  - SINUSITIS [None]
